FAERS Safety Report 9511188 (Version 1)
Quarter: 2013Q1

REPORT INFORMATION
  Report Type: Spontaneous
  Country: US (occurrence: None)
  Receive Date: 20130305
  Receipt Date: 20130305
  Transmission Date: 20140127
  Serious: No
  Sender: FDA-Public Use
  Company Number: 163-21880-12122576

PATIENT
  Age: 57 Year
  Sex: Male

DRUGS (2)
  1. REVLIMID [Suspect]
     Indication: PLASMA CELL MYELOMA
     Dosage: 5MG, 28 IN 28D, PO
     Route: 048
     Dates: start: 20120706
  2. VITAMIN D (ERGOCALCIFEROL) [Concomitant]

REACTIONS (1)
  - Full blood count decreased [None]
